FAERS Safety Report 9387377 (Version 2)
Quarter: 2013Q3

REPORT INFORMATION
  Report Type: Spontaneous
  Country: US (occurrence: US)
  Receive Date: 20130708
  Receipt Date: 20130730
  Transmission Date: 20140515
  Serious: Yes (Hospitalization, Disabling)
  Sender: FDA-Public Use
  Company Number: US-SANOFI-AVENTIS-2013SA066875

PATIENT
  Age: 64 Year
  Sex: Male
  Weight: 131.08 kg

DRUGS (11)
  1. LANTUS SOLOSTAR [Suspect]
     Dosage: DOSE:15 UNIT(S)
     Route: 058
  2. SOLOSTAR [Suspect]
  3. APIDRA SOLOSTAR [Suspect]
     Indication: TYPE 2 DIABETES MELLITUS
     Dosage: DOSE:22 UNIT(S)
     Route: 058
     Dates: start: 20110701
  4. SOLOSTAR [Suspect]
     Indication: TYPE 2 DIABETES MELLITUS
     Dates: start: 20110701
  5. METFORMIN HYDROCHLORIDE [Concomitant]
     Dosage: 2 TABLETS IN THE MORNING AND 3 AT NIGHT
  6. BENAZEPRIL HYDROCHLORIDE [Concomitant]
  7. TAMSULOSIN HYDROCHLORIDE [Concomitant]
  8. SIMVASTATIN [Concomitant]
  9. ASPIRIN [Concomitant]
  10. GLIMEPIRIDE [Concomitant]
  11. HYDROCHLOROTHIAZIDE [Concomitant]

REACTIONS (8)
  - Cerebrovascular accident [Unknown]
  - Urinary tract infection [Unknown]
  - Prostatitis [Unknown]
  - Cellulitis [Unknown]
  - Sepsis [Unknown]
  - Dupuytren^s contracture [Unknown]
  - Blood glucose increased [Recovered/Resolved]
  - Glycosylated haemoglobin increased [Unknown]
